FAERS Safety Report 25878325 (Version 1)
Quarter: 2025Q4

REPORT INFORMATION
  Report Type: Spontaneous
  Country: US (occurrence: None)
  Receive Date: 20251002
  Receipt Date: 20251002
  Transmission Date: 20260119
  Serious: No
  Sender: FDA-CTU
  Company Number: None

PATIENT
  Sex: Male
  Weight: 129.23 kg

DRUGS (31)
  1. DARATUMUMAB\HYALURONIDASE-FIHJ [Suspect]
     Active Substance: DARATUMUMAB\HYALURONIDASE-FIHJ
     Dates: start: 20240815, end: 20250403
  2. DEXAMETHASONE [Suspect]
     Active Substance: DEXAMETHASONE
     Dates: start: 20240815, end: 20250425
  3. LENALIDOMIDE [Suspect]
     Active Substance: LENALIDOMIDE
     Dates: start: 20250424, end: 20250424
  4. SITAGLIPTIN-METFORMIN HCI ER (JANUMET XR) [Concomitant]
     Dosage: OTHER QUANTITY : 100-1000MG;?
     Route: 004
     Dates: start: 2004
  5. PRAVACHOL [Concomitant]
     Active Substance: PRAVASTATIN SODIUM
     Dosage: FREQUENCY : DAILY;?
     Route: 048
     Dates: start: 2004
  6. DEXAMETHASONE [Concomitant]
     Active Substance: DEXAMETHASONE
     Dosage: FREQUENCY : DAILY;?
     Route: 048
     Dates: start: 20240717, end: 20240720
  7. MOMETASONE-FORMOTEROL (DULERA) INHALER [Concomitant]
     Dosage: OTHER QUANTITY : 200-5 MCG/ACT ;?FREQUENCY : TWICE A DAY;?
     Dates: start: 2004
  8. ALBUTEROL [Concomitant]
     Active Substance: ALBUTEROL
     Dosage: OTHER QUANTITY : 108 (90 BASE) MCG/AT;?FREQUENCY : DAILY;?
     Dates: start: 2004
  9. FERROUS SULFATE [Concomitant]
     Active Substance: FERROUS SULFATE
     Dosage: FREQUENCY : DAILY;?
     Route: 048
     Dates: start: 202407
  10. CYANOCOBALAMIN [Concomitant]
     Active Substance: CYANOCOBALAMIN
     Route: 048
     Dates: start: 20240704
  11. FLUCATISONE (FLONASE)NASAL SPRAY [Concomitant]
     Dosage: FREQUENCY : DAILY;?
     Dates: start: 202406
  12. TYLENOL [Concomitant]
     Active Substance: ACETAMINOPHEN
     Dosage: FREQUENCY : DAILY;?
     Route: 048
  13. MIRALAX [Concomitant]
     Active Substance: POLYETHYLENE GLYCOL 3350
  14. AZELASTINE (ASTELIN) 0.1% SPRAY [Concomitant]
  15. ASPIRIN [Concomitant]
     Active Substance: ASPIRIN
  16. ACYCLOVIR [Concomitant]
     Active Substance: ACYCLOVIR
  17. BACTRIM [Concomitant]
     Active Substance: SULFAMETHOXAZOLE\TRIMETHOPRIM
  18. MONTELUKAST (SINGULAR) [Concomitant]
  19. AUGMENTIN [Concomitant]
     Active Substance: AMOXICILLIN\CLAVULANATE POTASSIUM
  20. Prednisone* (taper to follow) [Concomitant]
  21. ZARXIO [Concomitant]
     Active Substance: FILGRASTIM-SNDZ
  22. ATOVAQUONE [Concomitant]
     Active Substance: ATOVAQUONE
  23. LISINOPRIL [Concomitant]
     Active Substance: LISINOPRIL
  24. GAS-X [Concomitant]
     Active Substance: DIMETHICONE
  25. VICKS NYQUIL [Concomitant]
     Active Substance: ACETAMINOPHEN\DEXTROMETHORPHAN HYDROBROMIDE\DOXYLAMINE SUCCINATE
  26. AZITHROMYCIN [Concomitant]
     Active Substance: AZITHROMYCIN
  27. VICKS DAYQUIL [Concomitant]
     Active Substance: DEXTROMETHORPHAN HYDROBROMIDE\GUAIFENESIN
  28. HUMAN IMMUNOGLOBULIN G [Concomitant]
     Active Substance: HUMAN IMMUNOGLOBULIN G
  29. POTASSIUM CHLORIDE [Concomitant]
     Active Substance: POTASSIUM CHLORIDE
  30. TUMS [Concomitant]
     Active Substance: CALCIUM CARBONATE
  31. POTASSIUM CHLORIDE [Concomitant]
     Active Substance: POTASSIUM CHLORIDE

REACTIONS (10)
  - Mental status changes [None]
  - Sinusitis [None]
  - Sepsis [None]
  - Meningoencephalitis viral [None]
  - Protein urine present [None]
  - Glucose urine present [None]
  - Urine ketone body present [None]
  - Blood urine present [None]
  - Cardiac failure congestive [None]
  - Atrial fibrillation [None]
